FAERS Safety Report 4293756-2 (Version None)
Quarter: 2004Q1

REPORT INFORMATION
  Report Type: 
  Country: None (occurrence: None)
  Receive Date: 20040212
  Receipt Date: 20040209
  Transmission Date: 20041129
  Serious: Yes (Other)
  Sender: FDA-Public Use
  Company Number: DE-GLAXOSMITHKLINE-D0043128A

PATIENT
  Age: 83 Year
  Sex: Female

DRUGS (4)
  1. RANITIDINE [Suspect]
     Dosage: 150MG UNKNOWN
     Route: 048
  2. LEPONEX [Suspect]
     Dosage: 100MG UNKNOWN
     Route: 048
  3. REMERGIL [Suspect]
     Dosage: 30MG UNKNOWN
     Route: 048
  4. DIANE [Suspect]
     Route: 048

REACTIONS (2)
  - HYPERTENSION [None]
  - SOPOR [None]
